FAERS Safety Report 4608305-6 (Version None)
Quarter: 2005Q1

REPORT INFORMATION
  Report Type: 
  Country: None (occurrence: None)
  Receive Date: 20050303
  Receipt Date: 20041230
  Transmission Date: 20050727
  Serious: No
  Sender: FDA-Public Use
  Company Number: 2004BI002412

PATIENT
  Age: 60 Year
  Sex: Male

DRUGS (4)
  1. AMEVIVE [Suspect]
     Indication: PSORIASIS
     Dosage: 15 MG;QW;IM
     Route: 030
  2. AMEVIVE [Suspect]
     Dosage: 25 MG;QOW;IM
     Route: 030
     Dates: end: 20041001
  3. ZOLOFT [Concomitant]
  4. PREVACID [Concomitant]

REACTIONS (1)
  - CD4 LYMPHOCYTES DECREASED [None]
